FAERS Safety Report 22229807 (Version 2)
Quarter: 2023Q2

REPORT INFORMATION
  Report Type: Spontaneous
  Country: US (occurrence: US)
  Receive Date: 20230419
  Receipt Date: 20230509
  Transmission Date: 20230721
  Serious: No
  Sender: FDA-Public Use
  Company Number: US-APIL-2308137US

PATIENT
  Age: 73 Year
  Sex: Female
  Weight: 81.633 kg

DRUGS (3)
  1. RESTASIS [Suspect]
     Active Substance: CYCLOSPORINE
     Indication: Product used for unknown indication
     Dosage: UNK UNK, BID
     Route: 047
     Dates: start: 20230111
  2. LUMIGAN [Concomitant]
     Active Substance: BIMATOPROST
     Indication: Glaucoma
     Dosage: AT NIGHT
     Dates: start: 2020
  3. OPTASE [Concomitant]
     Active Substance: BALSAM PERU\CASTOR OIL\TRYPSIN
     Indication: Dry eye
     Dosage: UNK, Q2HR

REACTIONS (3)
  - Eye pain [Recovered/Resolved]
  - Product colour issue [Unknown]
  - Product lot number issue [Unknown]

NARRATIVE: CASE EVENT DATE: 20230111
